FAERS Safety Report 14758099 (Version 3)
Quarter: 2018Q3

REPORT INFORMATION
  Report Type: Spontaneous
  Country: US (occurrence: US)
  Receive Date: 20180413
  Receipt Date: 20180921
  Transmission Date: 20181010
  Serious: Yes (Other)
  Sender: FDA-Public Use
  Company Number: US-ASTRAZENECA-2018SE44481

PATIENT
  Age: 25691 Day
  Sex: Female
  Weight: 74.8 kg

DRUGS (105)
  1. NEXIUM 24HR [Suspect]
     Active Substance: ESOMEPRAZOLE MAGNESIUM
     Indication: GASTROOESOPHAGEAL REFLUX DISEASE
     Route: 048
     Dates: start: 2013, end: 2016
  2. OMEPRAZOLE. [Suspect]
     Active Substance: OMEPRAZOLE
     Indication: GASTROOESOPHAGEAL REFLUX DISEASE
     Route: 065
     Dates: start: 2014
  3. TOBRAMYCIN. [Concomitant]
     Active Substance: TOBRAMYCIN
     Indication: LUNG INFECTION
     Dates: start: 2015, end: 2016
  4. CIPROFLOXACIN. [Concomitant]
     Active Substance: CIPROFLOXACIN
     Indication: INFECTION
     Dates: end: 2015
  5. CITRACAL [Concomitant]
     Active Substance: CALCIUM CITRATE
     Indication: BACK PAIN
     Dates: start: 2008
  6. FLEXERIL [Concomitant]
     Active Substance: CYCLOBENZAPRINE HYDROCHLORIDE
     Indication: BACK PAIN
     Dates: start: 20140315
  7. SYMBICORT [Concomitant]
     Active Substance: BUDESONIDE\FORMOTEROL FUMARATE DIHYDRATE
     Indication: BACK PAIN
     Dates: start: 20140417
  8. AMOX?CLAV [Concomitant]
     Active Substance: AMOXICILLIN\CLAVULANATE POTASSIUM
     Dates: start: 20160815
  9. DULOXETINE. [Concomitant]
     Active Substance: DULOXETINE
     Dates: start: 20160815
  10. GUAIFENESIN. [Concomitant]
     Active Substance: GUAIFENESIN
     Dates: start: 20171031
  11. CHLORHEXIDINE [Concomitant]
     Active Substance: CHLORHEXIDINE
     Dates: start: 20171031
  12. BUDESONIDE. [Concomitant]
     Active Substance: BUDESONIDE
     Dates: start: 20171031
  13. TOBRAMYCIN. [Concomitant]
     Active Substance: TOBRAMYCIN
     Dates: start: 20171031
  14. XENICAL [Concomitant]
     Active Substance: ORLISTAT
     Dates: start: 20171031
  15. RANITIDINE. [Concomitant]
     Active Substance: RANITIDINE
     Indication: MAGNESIUM DEFICIENCY
     Dates: start: 2010
  16. LEVOFLOXACIN. [Concomitant]
     Active Substance: LEVOFLOXACIN
     Indication: ANALGESIC THERAPY
     Dates: start: 2014, end: 2017
  17. MOXIFLOXACIN. [Concomitant]
     Active Substance: MOXIFLOXACIN
     Indication: ANALGESIC THERAPY
     Dates: start: 2014, end: 2015
  18. CIPROFLOXACIN. [Concomitant]
     Active Substance: CIPROFLOXACIN
     Indication: INFECTION
     Dates: start: 2011, end: 2012
  19. MIRAL [Concomitant]
     Indication: BACK PAIN
  20. KRILL OIL [Concomitant]
     Active Substance: DIETARY SUPPLEMENT
  21. PANTOPRAZOLE [Concomitant]
     Active Substance: PANTOPRAZOLE
     Dates: start: 20160815
  22. FLUCONAZOLE. [Concomitant]
     Active Substance: FLUCONAZOLE
     Dates: start: 20160815
  23. LEVOTHYROXINE. [Concomitant]
     Active Substance: LEVOTHYROXINE
     Dates: start: 20171031
  24. DILTIAZEM. [Concomitant]
     Active Substance: DILTIAZEM
     Dates: start: 20171031
  25. AZITHROMYCIN ANHYDROUS. [Concomitant]
     Active Substance: AZITHROMYCIN ANHYDROUS
     Dates: start: 20171031
  26. VENTOLIN [Concomitant]
     Active Substance: ALBUTEROL SULFATE
     Dates: start: 20171031
  27. LEVOXYL [Concomitant]
     Active Substance: LEVOTHYROXINE SODIUM
     Dates: start: 20171031
  28. ACIPHEX [Concomitant]
     Active Substance: RABEPRAZOLE SODIUM
     Dates: start: 20171031
  29. DOXAZOSIN [Concomitant]
     Active Substance: DOXAZOSIN\DOXAZOSIN MESYLATE
     Dates: start: 20171031
  30. NEXIUM [Suspect]
     Active Substance: ESOMEPRAZOLE MAGNESIUM
     Route: 048
     Dates: start: 20130721
  31. PANTOPRAZOLE [Suspect]
     Active Substance: PANTOPRAZOLE
     Route: 065
     Dates: start: 20130712, end: 20160601
  32. LORAZEPAM. [Concomitant]
     Active Substance: LORAZEPAM
     Indication: INSOMNIA
     Dates: start: 2006
  33. LOSARTAN. [Concomitant]
     Active Substance: LOSARTAN
     Indication: HYPERTENSION
     Dates: start: 2016
  34. SYNTHROID [Concomitant]
     Active Substance: LEVOTHYROXINE SODIUM
     Indication: THYROID DISORDER
     Dates: start: 2008
  35. DOXYCYCLINE. [Concomitant]
     Active Substance: DOXYCYCLINE
     Indication: INFECTION
     Dates: start: 2014
  36. MONTELUKAST [Concomitant]
     Active Substance: MONTELUKAST SODIUM
     Indication: HYPERSENSITIVITY
     Dates: start: 2017
  37. DIFLUCAN [Concomitant]
     Active Substance: FLUCONAZOLE
     Indication: BACK PAIN
  38. DILTIAZEM. [Concomitant]
     Active Substance: DILTIAZEM
  39. NASONEX [Concomitant]
     Active Substance: MOMETASONE FUROATE
     Dates: start: 20171031
  40. MINOXIDIL. [Concomitant]
     Active Substance: MINOXIDIL
     Dates: start: 20171031
  41. ZELNORM [Concomitant]
     Active Substance: TEGASEROD MALEATE
     Dates: start: 20171031
  42. PANTOPRAZOLE [Suspect]
     Active Substance: PANTOPRAZOLE
     Route: 065
     Dates: start: 2012
  43. OMEPRAZOLE. [Suspect]
     Active Substance: OMEPRAZOLE
     Indication: GASTROOESOPHAGEAL REFLUX DISEASE
     Dosage: GENERIC
     Route: 065
     Dates: start: 20130712, end: 20160601
  44. MAGNESIUM [Concomitant]
     Active Substance: MAGNESIUM
     Indication: MAGNESIUM DEFICIENCY
     Dates: start: 2010
  45. ZANTAC [Concomitant]
     Active Substance: RANITIDINE HYDROCHLORIDE
     Indication: MAGNESIUM DEFICIENCY
     Dates: start: 2015
  46. AMPICILLIN [Concomitant]
     Active Substance: AMPICILLIN
     Indication: INFECTION
     Dates: start: 2016
  47. GABAPENTIN. [Concomitant]
     Active Substance: GABAPENTIN
     Indication: FIBROMYALGIA
     Dates: start: 2016, end: 2017
  48. DICLOFENAC [Concomitant]
     Active Substance: DICLOFENAC
     Indication: ANALGESIC THERAPY
     Dates: start: 2017
  49. TELMISARTAN. [Concomitant]
     Active Substance: TELMISARTAN
     Indication: HYPERTENSION
     Dates: start: 2014, end: 2015
  50. NAPROXEN. [Concomitant]
     Active Substance: NAPROXEN
     Indication: ANALGESIC THERAPY
     Dates: start: 2014
  51. DOXAZOSIN [Concomitant]
     Active Substance: DOXAZOSIN\DOXAZOSIN MESYLATE
     Indication: HYPERTENSION
     Dates: start: 2015
  52. SULFANILAMIDE [Concomitant]
     Active Substance: SULFANILAMIDE
     Indication: BACK PAIN
     Dates: start: 2008
  53. MICARDIS [Concomitant]
     Active Substance: TELMISARTAN
     Indication: BACK PAIN
     Dates: start: 20140417
  54. CLARITIN [Concomitant]
     Active Substance: LORATADINE
     Indication: BACK PAIN
  55. ALBUTEROL. [Concomitant]
     Active Substance: ALBUTEROL
  56. BENZONATATE. [Concomitant]
     Active Substance: BENZONATATE
     Dates: start: 20160815
  57. CEPHALEXIN. [Concomitant]
     Active Substance: CEPHALEXIN
     Dates: start: 20160815
  58. HYDROCODONE [Concomitant]
     Active Substance: HYDROCODONE
     Dates: start: 20160815
  59. DICLOFENAC [Concomitant]
     Active Substance: DICLOFENAC
     Dates: start: 20160815
  60. NYSTATIN. [Concomitant]
     Active Substance: NYSTATIN
     Dates: start: 20171031
  61. CYCLOBENZAPRINE. [Concomitant]
     Active Substance: CYCLOBENZAPRINE
     Dates: start: 20171031
  62. TAMSULOSIN [Concomitant]
     Active Substance: TAMSULOSIN
     Dates: start: 20171031
  63. FEXOFENADINE [Concomitant]
     Active Substance: FEXOFENADINE\FEXOFENADINE HYDROCHLORIDE
     Dates: start: 20171031
  64. CALCIUM [Concomitant]
     Active Substance: CALCIUM
     Indication: HYPOVITAMINOSIS
     Dates: start: 2010
  65. AMOXICILLIN. [Concomitant]
     Active Substance: AMOXICILLIN
     Dates: start: 2015
  66. LEVOCETIRIZINE [Concomitant]
     Active Substance: LEVOCETIRIZINE
     Indication: URTICARIA
     Dates: start: 2015
  67. NYSTATIN. [Concomitant]
     Active Substance: NYSTATIN
     Indication: FUNGAL INFECTION
     Dates: start: 2013, end: 2015
  68. LEVAQUIN [Concomitant]
     Active Substance: LEVOFLOXACIN
     Indication: INFECTION
     Dates: start: 2010
  69. PENICILLIN [Concomitant]
     Active Substance: PENICILLIN
     Indication: BACK PAIN
     Dates: start: 2008
  70. LYRICA [Concomitant]
     Active Substance: PREGABALIN
     Indication: BACK PAIN
     Dates: start: 20140315
  71. QVAR [Concomitant]
     Active Substance: BECLOMETHASONE DIPROPIONATE
  72. CYCLOBENZAPRINE. [Concomitant]
     Active Substance: CYCLOBENZAPRINE
     Dates: start: 20160815
  73. HYOSCYAMINE. [Concomitant]
     Active Substance: HYOSCYAMINE
     Dates: start: 20171031
  74. MUPIROCIN. [Concomitant]
     Active Substance: MUPIROCIN
     Dates: start: 20171031
  75. TRIAMCINOLONE [Concomitant]
     Active Substance: TRIAMCINOLONE
     Dates: start: 20171031
  76. ZYRTEC [Concomitant]
     Active Substance: CETIRIZINE HYDROCHLORIDE
     Dates: start: 20171031
  77. PANTOPRAZOLE [Suspect]
     Active Substance: PANTOPRAZOLE
     Route: 065
     Dates: start: 20130712, end: 20160601
  78. MELOXICAM. [Concomitant]
     Active Substance: MELOXICAM
     Indication: OSTEOARTHRITIS
     Dates: start: 2013, end: 2016
  79. GABAPENTIN. [Concomitant]
     Active Substance: GABAPENTIN
     Indication: FIBROMYALGIA
     Dates: start: 2009
  80. IODINE. [Concomitant]
     Active Substance: IODINE
     Indication: BACK PAIN
     Dates: start: 2008
  81. ESCITALOPRAM [Concomitant]
     Active Substance: ESCITALOPRAM OXALATE
     Dates: start: 20160815
  82. METHYLPREDNISOLONE. [Concomitant]
     Active Substance: METHYLPREDNISOLONE
     Dates: start: 20160815
  83. MELOXICAM. [Concomitant]
     Active Substance: MELOXICAM
     Dates: start: 20171031
  84. CLINDAMYCIN. [Concomitant]
     Active Substance: CLINDAMYCIN
     Dates: start: 20171031
  85. ADVAIR HFA [Concomitant]
     Active Substance: FLUTICASONE PROPIONATE\SALMETEROL XINAFOATE
     Dates: start: 20171031
  86. PEPCID [Concomitant]
     Active Substance: FAMOTIDINE
     Indication: MAGNESIUM DEFICIENCY
     Dates: start: 2010
  87. AMOXICILLIN. [Concomitant]
     Active Substance: AMOXICILLIN
     Indication: INFECTION
     Dates: start: 2016, end: 2017
  88. CYCLOBENZAPRINE. [Concomitant]
     Active Substance: CYCLOBENZAPRINE
     Indication: BACK PAIN
     Dates: start: 2008
  89. MUCINEX [Concomitant]
     Active Substance: GUAIFENESIN
     Indication: BACK PAIN
     Dates: start: 20130417
  90. XYZAL [Concomitant]
     Active Substance: LEVOCETIRIZINE DIHYDROCHLORIDE
     Indication: BACK PAIN
  91. PANTOPRAZOLE [Concomitant]
     Active Substance: PANTOPRAZOLE
     Dates: start: 20160815
  92. HYDROMET [Concomitant]
     Active Substance: HOMATROPINE METHYLBROMIDE\HYDROCODONE BITARTRATE
     Dates: start: 20171031
  93. MOXIFLOXACIN. [Concomitant]
     Active Substance: MOXIFLOXACIN
     Dates: start: 20171031
  94. NITROFURANTOIN. [Concomitant]
     Active Substance: NITROFURANTOIN
     Dates: start: 20171031
  95. METRONIDAZOLE. [Concomitant]
     Active Substance: METRONIDAZOLE
     Dates: start: 20171031
  96. HYDROQUINONE. [Concomitant]
     Active Substance: HYDROQUINONE
     Dates: start: 20171031
  97. AMLODIPINE BESILATE [Concomitant]
     Active Substance: AMLODIPINE BESYLATE
     Dates: start: 20171031
  98. NEXIUM [Suspect]
     Active Substance: ESOMEPRAZOLE MAGNESIUM
     Route: 048
     Dates: start: 20130712, end: 20160601
  99. BENADRYL [Concomitant]
     Active Substance: DIPHENHYDRAMINE HYDROCHLORIDE
     Indication: HYPERSENSITIVITY
     Dates: start: 2010
  100. TYLENOL [Concomitant]
     Active Substance: ACETAMINOPHEN
     Indication: HYPERSENSITIVITY
     Dates: start: 2016
  101. TRAMADOL. [Concomitant]
     Active Substance: TRAMADOL
     Indication: ANALGESIC THERAPY
     Dates: start: 2016
  102. AZITHROMYCIN ANHYDROUS. [Concomitant]
     Active Substance: AZITHROMYCIN ANHYDROUS
     Indication: INFECTION
     Dates: start: 2008, end: 2015
  103. IBUPROFEN. [Concomitant]
     Active Substance: IBUPROFEN
     Indication: ANALGESIC THERAPY
     Dates: start: 2008, end: 2013
  104. POTASSIUM GLUCONATE [Concomitant]
     Active Substance: POTASSIUM GLUCONATE
     Indication: BACK PAIN
  105. BREO ELLIPTA [Concomitant]
     Active Substance: FLUTICASONE FUROATE\VILANTEROL TRIFENATATE
     Indication: BACK PAIN

REACTIONS (1)
  - Chronic kidney disease [Not Recovered/Not Resolved]

NARRATIVE: CASE EVENT DATE: 20150529
